FAERS Safety Report 7732174-9 (Version None)
Quarter: 2011Q3

REPORT INFORMATION
  Report Type: 
  Country: None (occurrence: None)
  Receive Date: 20110906
  Receipt Date: 20110825
  Transmission Date: 20111222
  Serious: Yes (Hospitalization)
  Sender: FDA-Public Use
  Company Number: JP-PFIZER INC-2011189938

PATIENT
  Age: 70 Year
  Sex: Male
  Weight: 56.2 kg

DRUGS (15)
  1. SULFAMETHOXAZOLE AND TRIMETHOPRIM [Concomitant]
     Dosage: 80 MG, UNK
     Route: 048
  2. ACICLOVIR [Concomitant]
     Dosage: 400 MG, UNK
     Route: 048
     Dates: start: 20110416
  3. MECOBALAMIN [Concomitant]
     Dosage: 1500 MG, UNK
     Route: 048
     Dates: start: 20110615
  4. DILTIAZEM HYDROCHLORIDE [Concomitant]
     Dosage: 200 MG, UNK
     Route: 048
  5. NIFEDIPINE [Concomitant]
     Dosage: 40 MG, UNK
     Route: 048
  6. NITOROL R [Concomitant]
     Dosage: 40 MG, UNK
     Route: 048
  7. NEUTROGIN [Concomitant]
     Dosage: 100 UG, UNK
     Route: 058
     Dates: start: 20110805
  8. CEFEPIME DIHYDROCHLORIDE HYDRATE [Concomitant]
     Dosage: 4 MG, ROUTE IJ
     Dates: start: 20110805
  9. DOXORUBICIN HYDROCHLORIDE [Suspect]
     Indication: ADULT T-CELL LYMPHOMA/LEUKAEMIA
     Dosage: 48 MG, UNK
     Route: 041
     Dates: start: 20110401, end: 20110803
  10. ZOLPIDEM [Concomitant]
     Dosage: 5 MG, UNK
     Route: 048
  11. FLUCONAZOLE [Concomitant]
     Dosage: 100 MG, UNK
     Route: 048
  12. LIPITOR [Concomitant]
     Dosage: 100 MG, UNK
     Route: 048
  13. RABEPRAZOLE SODIUM [Concomitant]
     Dosage: 10 MG, UNK
     Route: 048
  14. CYMERIN [Suspect]
     Indication: ADULT T-CELL LYMPHOMA/LEUKAEMIA
     Dosage: 95 MG, UNK
     Route: 041
     Dates: start: 20110401, end: 20110803
  15. PREDNISOLONE [Suspect]
     Indication: ADULT T-CELL LYMPHOMA/LEUKAEMIA
     Dosage: 60 MG, UNK
     Route: 048
     Dates: start: 20110401, end: 20110803

REACTIONS (2)
  - PNEUMONIA [None]
  - ENTEROCOLITIS [None]
